FAERS Safety Report 17761138 (Version 1)
Quarter: 2020Q2

REPORT INFORMATION
  Report Type: Spontaneous
  Country: PT (occurrence: PT)
  Receive Date: 20200508
  Receipt Date: 20200508
  Transmission Date: 20200714
  Serious: Yes (Disabling)
  Sender: FDA-Public Use
  Company Number: PT-TEVA-2020-PT-1231748

PATIENT
  Age: 75 Year
  Sex: Female
  Weight: 78 kg

DRUGS (2)
  1. ECOXIB + GLUCOSAMIDE SULFATE [Concomitant]
  2. GABAPENTINA RATIOPHARM 100 MG CAPSULAS [Suspect]
     Active Substance: GABAPENTIN
     Indication: PAIN
     Dosage: 100MG TWICE A DAY
     Route: 048
     Dates: start: 20200313, end: 20200401

REACTIONS (2)
  - Hypertension [Recovered/Resolved]
  - Face oedema [Recovered/Resolved]

NARRATIVE: CASE EVENT DATE: 20200315
